FAERS Safety Report 13645314 (Version 1)
Quarter: 2017Q2

REPORT INFORMATION
  Report Type: Spontaneous
  Country: US (occurrence: US)
  Receive Date: 20170612
  Receipt Date: 20170612
  Transmission Date: 20170830
  Serious: No
  Sender: FDA-Public Use
  Company Number: US-ROCHE-1080656

PATIENT
  Sex: Male

DRUGS (1)
  1. XELODA [Suspect]
     Active Substance: CAPECITABINE
     Indication: COLON CANCER
     Dosage: DOSE: 2500 MG AM, 2000 MG PM
     Route: 065
     Dates: start: 20120607

REACTIONS (2)
  - Skin discolouration [Not Recovered/Not Resolved]
  - Diarrhoea [Unknown]
